FAERS Safety Report 7054735-5 (Version None)
Quarter: 2010Q4

REPORT INFORMATION
  Report Type: 
  Country: None (occurrence: None)
  Receive Date: 20101018
  Receipt Date: 20101011
  Transmission Date: 20110411
  Serious: Yes (Hospitalization)
  Sender: FDA-Public Use
  Company Number: 2010US003439

PATIENT
  Age: 9 Year
  Sex: Male

DRUGS (7)
  1. TACROLIMUS [Suspect]
     Indication: DERMATITIS ATOPIC
     Dosage: 0.1%, PRN, TOPICAL
     Route: 061
     Dates: start: 20080603
  2. ADVAIR DISKUS 100/50 [Concomitant]
  3. ALBUTEROL [Concomitant]
  4. XYZAL [Concomitant]
  5. SINGULAIR [Concomitant]
  6. KENALOG [Concomitant]
  7. ELOCON [Concomitant]

REACTIONS (3)
  - ASTHMA [None]
  - BRONCHIAL HYPERREACTIVITY [None]
  - CONDITION AGGRAVATED [None]
